FAERS Safety Report 4717985-6 (Version None)
Quarter: 2005Q3

REPORT INFORMATION
  Report Type: 
  Country: None (occurrence: None)
  Receive Date: 20050720
  Receipt Date: 20050530
  Transmission Date: 20060218
  Serious: Yes (Other)
  Sender: FDA-Public Use
  Company Number: PHBS2005JP07815

PATIENT
  Age: 79 Year
  Sex: Female

DRUGS (4)
  1. NORVASC [Concomitant]
     Indication: HYPERTENSION
     Dosage: 5 MG, UNK
     Route: 048
     Dates: start: 19990119
  2. SELBEX [Concomitant]
     Indication: GASTRITIS
     Dosage: 50 MG, UNK
     Route: 048
     Dates: start: 20030407, end: 20050311
  3. DEPAS [Concomitant]
     Indication: INSOMNIA
     Dosage: 0.5 MG, UNK
     Route: 048
     Dates: start: 20050121, end: 20050204
  4. DIOVAN [Suspect]
     Dosage: 40 MG, QD
     Route: 048
     Dates: start: 20050121, end: 20050309

REACTIONS (9)
  - COOMBS DIRECT TEST POSITIVE [None]
  - DYSPNOEA [None]
  - HAEMATOCRIT DECREASED [None]
  - HAEMOGLOBIN DECREASED [None]
  - HAEMOLYTIC ANAEMIA [None]
  - HAPTOGLOBIN DECREASED [None]
  - MALAISE [None]
  - RED BLOOD CELL COUNT DECREASED [None]
  - SENSATION OF HEAVINESS [None]
